FAERS Safety Report 10080938 (Version 4)
Quarter: 2014Q2

REPORT INFORMATION
  Report Type: Spontaneous
  Country: IT (occurrence: IT)
  Receive Date: 20140416
  Receipt Date: 20140627
  Transmission Date: 20141212
  Serious: Yes (Hospitalization)
  Sender: FDA-Public Use
  Company Number: IT-TEVA-473336ISR

PATIENT
  Age: 51 Year
  Sex: Female
  Weight: 53 kg

DRUGS (5)
  1. TEMOZOLOMIDE [Suspect]
     Dosage: 120 MILLIGRAM DAILY;
     Route: 048
     Dates: start: 20130920, end: 20131025
  2. DEXAMETHASONE [Concomitant]
  3. CITALOPRAM [Concomitant]
  4. OMEPRAZOLE [Concomitant]
  5. ATORVASTATINE [Concomitant]

REACTIONS (3)
  - Bone marrow failure [Not Recovered/Not Resolved]
  - Thrombocytopenia [Not Recovered/Not Resolved]
  - Bone marrow failure [Unknown]
